FAERS Safety Report 9228270 (Version 1)
Quarter: 2013Q2

REPORT INFORMATION
  Report Type: Report from Study
  Country: US (occurrence: US)
  Receive Date: 20130412
  Receipt Date: 20130412
  Transmission Date: 20140414
  Serious: Yes (Death)
  Sender: FDA-Public Use
  Company Number: US-ROCHE-1208900

PATIENT
  Age: 16 Year
  Sex: Male

DRUGS (3)
  1. ALTEPLASE [Suspect]
     Indication: VENOOCCLUSIVE LIVER DISEASE
     Dosage: 10 TO 50 MG PER DAY
     Route: 065
  2. ALTEPLASE [Suspect]
     Route: 065
  3. HEPARIN [Suspect]
     Indication: VENOOCCLUSIVE LIVER DISEASE
     Route: 065

REACTIONS (1)
  - Venoocclusive liver disease [Fatal]
